FAERS Safety Report 5782061-0 (Version None)
Quarter: 2008Q2

REPORT INFORMATION
  Report Type: 
  Country: None (occurrence: None)
  Receive Date: 20080623
  Receipt Date: 20080611
  Transmission Date: 20081010
  Serious: Yes (Life-Threatening)
  Sender: FDA-Public Use
  Company Number: CH-ELI_LILLY_AND_COMPANY-CH200805005608

PATIENT
  Age: 49 Year
  Sex: Male
  Weight: 86 kg

DRUGS (14)
  1. FLUCTINE [Suspect]
     Dosage: 20 MG, UNK
     Dates: start: 20080101, end: 20080101
  2. FLUCTINE [Suspect]
     Dosage: UNK UNK, DAILY (1/D)
     Route: 048
     Dates: start: 20080225, end: 20080317
  3. FLUCTINE [Suspect]
     Dosage: 15 MG, DAILY (1/D)
     Route: 048
     Dates: start: 20080318, end: 20080323
  4. FLUCTINE [Suspect]
     Dosage: 10 MG, DAILY (1/D)
     Route: 048
     Dates: start: 20080324, end: 20080406
  5. FLUCTINE [Suspect]
     Dosage: 5 MG, DAILY (1/D)
     Route: 048
     Dates: start: 20080407, end: 20080410
  6. SEROPRAM [Concomitant]
     Dosage: UNK UNK, DAILY (1/D)
     Dates: start: 19980101, end: 20080224
  7. SEROPRAM [Concomitant]
     Dosage: 10 MG, DAILY (1/D)
     Dates: start: 20080224, end: 20080229
  8. SEROPRAM [Concomitant]
     Dosage: 20 MG, DAILY (1/D)
     Dates: start: 20080413
  9. ACETAMINOPHEN [Concomitant]
     Dosage: 500 MG, 2/D
     Dates: start: 20080301, end: 20080317
  10. ACETAMINOPHEN [Concomitant]
     Dosage: 500 MG, 3/D
     Dates: start: 20030518, end: 20080331
  11. MEPHADOLOR [Concomitant]
     Dosage: 500 MG, 2/D
     Dates: start: 20080331, end: 20080425
  12. ISOPTIN [Concomitant]
     Dosage: 120 MG, DAILY (1/D)
     Dates: start: 20080426, end: 20080428
  13. LYRICA [Concomitant]
     Dosage: 200 MG, DAILY (1/D)
     Dates: start: 20080429, end: 20080503
  14. LYRICA [Concomitant]
     Dosage: 100 MG, UNK
     Dates: start: 20080504, end: 20080101

REACTIONS (16)
  - BLOOD PRESSURE INCREASED [None]
  - DENTAL CARIES [None]
  - EAR INFECTION [None]
  - FACIAL PAIN [None]
  - FATIGUE [None]
  - GENERAL PHYSICAL HEALTH DETERIORATION [None]
  - GINGIVAL SWELLING [None]
  - HEADACHE [None]
  - HYPERHIDROSIS [None]
  - INSOMNIA [None]
  - IRRITABILITY [None]
  - MUSCULOSKELETAL STIFFNESS [None]
  - OEDEMA MOUTH [None]
  - PAIN [None]
  - PHOTOPHOBIA [None]
  - TOOTHACHE [None]
